FAERS Safety Report 17888251 (Version 1)
Quarter: 2020Q2

REPORT INFORMATION
  Report Type: Spontaneous
  Country: US (occurrence: US)
  Receive Date: 20200611
  Receipt Date: 20200611
  Transmission Date: 20200714
  Serious: Yes (Other)
  Sender: FDA-Public Use
  Company Number: None

PATIENT
  Age: 60 Year
  Sex: Male
  Weight: 115 kg

DRUGS (21)
  1. LORAZEPAM PRN [Concomitant]
     Dates: start: 20200605, end: 20200605
  2. NOREPINEPHRINE INTRAVENOUS DRIP [Concomitant]
     Dates: start: 20200605, end: 20200605
  3. CEFTRIAXONE. [Concomitant]
     Active Substance: CEFTRIAXONE
     Dates: start: 20200603, end: 20200609
  4. ZINC SULFATE CAPSULES [Concomitant]
     Dates: start: 20200603, end: 20200611
  5. PROPOFOL INTRAVENOUS DRIP [Concomitant]
     Dates: start: 20200605, end: 20200611
  6. VERURONIUM PRN (GOT 1 DOSE ON 6/5) [Concomitant]
     Dates: start: 20200605, end: 20200611
  7. ASCORBIC ACID  (INTRAVENOUS) [Concomitant]
     Dates: start: 20200603, end: 20200611
  8. HYDROCODONE/ACETAMINOPHEN TABLETS PRN (GOT 1 DOSE) [Concomitant]
     Dates: start: 20200604, end: 20200611
  9. CISATRACURIUM. [Concomitant]
     Active Substance: CISATRACURIUM
     Dates: start: 20200605, end: 20200610
  10. REMDESIVIR. [Suspect]
     Active Substance: REMDESIVIR
     Indication: COVID-19
     Dosage: ?          OTHER FREQUENCY:ONCE;?
     Route: 042
     Dates: start: 20200604, end: 20200604
  11. ACETAMINOPHEN PRN [Concomitant]
     Dates: start: 20200603, end: 20200611
  12. ALBUTEROL INHALER [Concomitant]
     Active Substance: ALBUTEROL
     Dates: start: 20200603, end: 20200611
  13. GUAIFENESIN/DEXTROMETHORPHAN PRN (GOT 1 DOSE) [Concomitant]
     Dates: start: 20200603, end: 20200611
  14. ORPHENADRINE ER TABLETS PRN (GOT 1 DOSE) [Concomitant]
     Dates: start: 20200604, end: 20200611
  15. LUBRICANT EYE OINTMENT [Concomitant]
     Dates: start: 20200605, end: 20200611
  16. SUCCINYLCHOLINE (1 DOSE) [Concomitant]
     Dates: start: 20200605, end: 20200605
  17. AZITHROMYCIN (INTRAVENOUS) [Concomitant]
     Dates: start: 20200603, end: 20200609
  18. ENOXAPARIN [Concomitant]
     Active Substance: ENOXAPARIN
     Dates: start: 20200604, end: 20200606
  19. NATURAL TEARS DROPS [Concomitant]
     Dates: start: 20200605, end: 20200611
  20. REMDESIVIR. [Suspect]
     Active Substance: REMDESIVIR
     Indication: COVID-19
     Route: 042
     Dates: start: 20200605, end: 20200605
  21. FENTANYL INTRAVENOUS DRIP [Concomitant]
     Dates: start: 20200605, end: 20200611

REACTIONS (6)
  - Respiratory failure [None]
  - Sepsis [None]
  - Acute kidney injury [None]
  - Pneumonia [None]
  - Blood creatinine increased [None]
  - Dialysis [None]

NARRATIVE: CASE EVENT DATE: 20200606
